FAERS Safety Report 15560459 (Version 1)
Quarter: 2018Q4

REPORT INFORMATION
  Report Type: Spontaneous
  Country: DK (occurrence: DK)
  Receive Date: 20181029
  Receipt Date: 20181029
  Transmission Date: 20190205
  Serious: Yes (Disabling)
  Sender: FDA-Public Use
  Company Number: DK-PFIZER INC-2018398733

PATIENT
  Age: 59 Year
  Sex: Female
  Weight: 73 kg

DRUGS (12)
  1. ZOLPIDEM [Concomitant]
     Active Substance: ZOLPIDEM\ZOLPIDEM TARTRATE
     Indication: INSOMNIA
     Dosage: 1 DF, UNK
     Dates: start: 20180131
  2. ALNOK [Concomitant]
     Active Substance: CETIRIZINE HYDROCHLORIDE
     Indication: SEASONAL ALLERGY
     Dosage: 1X/DAY
     Dates: start: 20170504
  3. PAMOL [Concomitant]
     Active Substance: ACETAMINOPHEN
     Indication: PAIN
     Dosage: 2 DF AS NEEDED. MAX 4 TIMES A DAY
     Dates: start: 20160815
  4. MOTILIUM [DOMPERIDONE] [Concomitant]
     Indication: NAUSEA
     Dosage: 1 DF, 3X/DAY
     Dates: start: 20171215
  5. UNIKALK FORTE [Concomitant]
     Indication: MINERAL SUPPLEMENTATION
     Dosage: 1 DF, 2X/DAY
     Dates: start: 20160815
  6. ZOLMITRIPTAN ACTAVIS [Concomitant]
     Indication: MIGRAINE
     Dosage: 1 TABLET AS NEEDED
     Dates: start: 20140226
  7. DOLOPROCT [FLUOCORTOLONE PIVALATE;LIDOCAINE HYDROCHLORIDE] [Concomitant]
     Indication: HAEMORRHOIDS
     Dosage: 1 DF, 2X/DAY AS NEEDED
     Route: 054
     Dates: start: 20150807
  8. OMEPRAZOL ACTAVIS [Concomitant]
     Active Substance: OMEPRAZOLE
     Indication: ULCER
     Dosage: 1 DF, DAILY
     Dates: start: 20170711
  9. PROLIA [Concomitant]
     Active Substance: DENOSUMAB
     Indication: OSTEOPOROSIS
     Dosage: 60 MG X 1 EVERY 26 WEEKS MONDAY AT 8 O CLOCK
     Dates: start: 20131119
  10. XELJANZ [Suspect]
     Active Substance: TOFACITINIB CITRATE
     Indication: RHEUMATOID ARTHRITIS
     Dosage: 5 MG, 2X/DAY
     Dates: start: 20180619
  11. VAGIFEM [Concomitant]
     Active Substance: ESTRADIOL
     Indication: HORMONE THERAPY
     Dosage: 10 UG, DAILY THURSDAY AND SUNDAY
     Dates: start: 20150902
  12. BETNOVATE [Concomitant]
     Active Substance: BETAMETHASONE
     Indication: SKIN DISORDER
     Dosage: 1-2 TIMES PER DAY AS NEEDED
     Dates: start: 20180104

REACTIONS (3)
  - Apathy [Recovering/Resolving]
  - Memory impairment [Recovering/Resolving]
  - Feeling abnormal [Recovering/Resolving]

NARRATIVE: CASE EVENT DATE: 20180620
